FAERS Safety Report 11031023 (Version 1)
Quarter: 2015Q2

REPORT INFORMATION
  Report Type: Spontaneous
  Country: US (occurrence: US)
  Receive Date: 20150415
  Receipt Date: 20150415
  Transmission Date: 20150821
  Serious: Yes (Other)
  Sender: FDA-Public Use
  Company Number: US-PFIZER INC-2015127599

PATIENT
  Age: 66 Year
  Sex: Female
  Weight: 113 kg

DRUGS (2)
  1. COBIX [Suspect]
     Active Substance: CELECOXIB
     Dosage: 200 MG, UNK
     Dates: start: 20150331
  2. CELEBREX [Suspect]
     Active Substance: CELECOXIB
     Indication: OSTEOARTHRITIS
     Dosage: 200 MG, 1X/DAY
     Dates: start: 20150331

REACTIONS (4)
  - Carpal tunnel syndrome [Not Recovered/Not Resolved]
  - Peripheral swelling [Not Recovered/Not Resolved]
  - Joint swelling [Not Recovered/Not Resolved]
  - Condition aggravated [Not Recovered/Not Resolved]

NARRATIVE: CASE EVENT DATE: 20150401
